FAERS Safety Report 18342956 (Version 1)
Quarter: 2020Q4

REPORT INFORMATION
  Report Type: Spontaneous
  Country: US (occurrence: US)
  Receive Date: 20201002
  Receipt Date: 20201002
  Transmission Date: 20210113
  Serious: No
  Sender: FDA-Public Use
  Company Number: None

PATIENT
  Age: 39 Year
  Sex: Male

DRUGS (1)
  1. COSENTYX [Suspect]
     Active Substance: SECUKINUMAB
     Indication: ANKYLOSING SPONDYLITIS
     Dosage: OTHER FREQUENCY:PER 2 WK FOR 5 WKS; AS DIRECTED?
     Route: 058
     Dates: start: 202009

REACTIONS (1)
  - Nasopharyngitis [None]
